FAERS Safety Report 11800260 (Version 1)
Quarter: 2015Q4

REPORT INFORMATION
  Report Type: Spontaneous
  Country: FI (occurrence: FI)
  Receive Date: 20151203
  Receipt Date: 20151203
  Transmission Date: 20160305
  Serious: Yes (Hospitalization)
  Sender: FDA-Public Use
  Company Number: FI-AMGEN-FINSP2015126643

PATIENT
  Age: 7 Year
  Sex: Female

DRUGS (2)
  1. XGEVA [Suspect]
     Active Substance: DENOSUMAB
     Indication: PRODUCT USED FOR UNKNOWN INDICATION
     Dosage: 120 MG/ML, QMO
     Route: 058
     Dates: start: 20141210, end: 20150324
  2. CALCICHEW D3 STRONG SITRUUNA [Concomitant]
     Dosage: 2 DF, QD
     Route: 048
     Dates: start: 20141210, end: 20150324

REACTIONS (4)
  - Decreased appetite [Not Recovered/Not Resolved]
  - Off label use [Unknown]
  - Hypercalcaemia [Not Recovered/Not Resolved]
  - Fatigue [Not Recovered/Not Resolved]

NARRATIVE: CASE EVENT DATE: 20150930
